FAERS Safety Report 5763580-X (Version None)
Quarter: 2008Q2

REPORT INFORMATION
  Report Type: 
  Country: None (occurrence: None)
  Receive Date: 20080610
  Receipt Date: 20080529
  Transmission Date: 20081010
  Serious: Yes (Death, Hospitalization)
  Sender: FDA-Public Use
  Company Number: PHHY2008JP01336

PATIENT
  Age: 19 Year
  Sex: Male
  Weight: 57 kg

DRUGS (3)
  1. GLEEVEC [Suspect]
     Dosage: UNK
     Route: 048
     Dates: start: 20060301, end: 20060501
  2. MOLECULE TARGETING THERAPY [Concomitant]
  3. GEFITINIB [Concomitant]

REACTIONS (3)
  - CYSTITIS HAEMORRHAGIC [None]
  - HYPOGLYCAEMIA [None]
  - MALIGNANT NEOPLASM PROGRESSION [None]
